FAERS Safety Report 6869774-4 (Version None)
Quarter: 2010Q3

REPORT INFORMATION
  Report Type: 
  Country: None (occurrence: None)
  Receive Date: 20100721
  Receipt Date: 20100708
  Transmission Date: 20110219
  Serious: Yes (Other)
  Sender: FDA-Public Use
  Company Number: DKLU1063308

PATIENT
  Age: 43 Year
  Sex: Female

DRUGS (2)
  1. SABRIL [Suspect]
     Indication: PRODUCT USED FOR UNKNOWN INDICATION
     Dosage: 1 G GRAM (S), DAILY
  2. CARBAMAZEPINE [Concomitant]

REACTIONS (1)
  - OPTIC ATROPHY [None]
